FAERS Safety Report 20751537 (Version 1)
Quarter: 2022Q2

REPORT INFORMATION
  Report Type: Spontaneous
  Country: US (occurrence: None)
  Receive Date: 20220426
  Receipt Date: 20220426
  Transmission Date: 20220721
  Serious: No
  Sender: FDA-Public Use
  Company Number: None

PATIENT

DRUGS (2)
  1. ALFUZOSIN HYDROCHLORIDE [Suspect]
     Active Substance: ALFUZOSIN HYDROCHLORIDE
     Dosage: DOSAGE: TABLET, EXTENDED RELEASE
  2. SILODOSIN [Suspect]
     Active Substance: SILODOSIN
     Dosage: DOSAGE FORM: CAPSULE
     Route: 048

REACTIONS (3)
  - Duplicate therapy error [None]
  - Contraindicated product administered [None]
  - Drug interaction [None]
